FAERS Safety Report 10208509 (Version 5)
Quarter: 2015Q1

REPORT INFORMATION
  Report Type: Report from Study
  Country: JP (occurrence: JP)
  Receive Date: 20140530
  Receipt Date: 20150311
  Transmission Date: 20150720
  Serious: Yes (Life-Threatening, Other)
  Sender: FDA-Public Use
  Company Number: JP-GLAXOSMITHKLINE-B0996826A

PATIENT
  Age: 69 Year
  Sex: Male
  Weight: 56 kg

DRUGS (29)
  1. AZATHIOPRINE. [Suspect]
     Active Substance: AZATHIOPRINE
     Indication: ALLERGIC GRANULOMATOUS ANGIITIS
     Dosage: 50 MG, QD
     Route: 048
     Dates: start: 201211, end: 20121219
  2. PREDONINE [Suspect]
     Active Substance: PREDNISOLONE\PREDNISOLONE ACETATE\PREDNISOLONE SODIUM SUCCINATE
     Dosage: 20 MG, QD
     Route: 051
     Dates: start: 20130120
  3. ELASPOL [Suspect]
     Active Substance: SIVELESTAT SODIUM
     Dosage: 300 MG, QD
     Route: 042
     Dates: start: 20130112
  4. SOLU-MEDROL [Suspect]
     Active Substance: METHYLPREDNISOLONE SODIUM SUCCINATE
     Dosage: 500 MG, QD
     Route: 042
     Dates: start: 20121228, end: 20121230
  5. AMBISOME [Suspect]
     Active Substance: AMPHOTERICIN B
     Dosage: 100 MG, QD
     Route: 041
     Dates: start: 20130122
  6. RANITIDINE HYDROCHLORIDE. [Suspect]
     Active Substance: RANITIDINE HYDROCHLORIDE
     Indication: PROPHYLAXIS AGAINST GASTROINTESTINAL ULCER
     Dosage: 100 MG, BID
     Route: 042
     Dates: start: 20130112
  7. ITRACONAZOLE. [Suspect]
     Active Substance: ITRACONAZOLE
     Dosage: 100 MG, QD
     Route: 050
     Dates: start: 20121228, end: 20130123
  8. SOLU-MEDROL [Suspect]
     Active Substance: METHYLPREDNISOLONE SODIUM SUCCINATE
     Dosage: 250 MG, QD
     Route: 042
     Dates: start: 20121231, end: 20130102
  9. SOLU-MEDROL [Suspect]
     Active Substance: METHYLPREDNISOLONE SODIUM SUCCINATE
     Dosage: 500 MG, QD
     Route: 042
     Dates: start: 20130113, end: 20130115
  10. FUNGUARD [Suspect]
     Active Substance: MICAFUNGIN SODIUM
     Dosage: 150 MG, QD
     Route: 041
     Dates: start: 20130119, end: 20130121
  11. ATOVAQUONE. [Suspect]
     Active Substance: ATOVAQUONE
     Indication: PNEUMOCYSTIS JIROVECII PNEUMONIA
     Dosage: 750 MG, BID
     Route: 048
     Dates: start: 20130118, end: 20130123
  12. PREDONINE [Suspect]
     Active Substance: PREDNISOLONE\PREDNISOLONE ACETATE\PREDNISOLONE SODIUM SUCCINATE
     Route: 051
     Dates: start: 20121226, end: 20121228
  13. FUROSEMIDE. [Suspect]
     Active Substance: FUROSEMIDE
     Dosage: 20 MG, QD
     Route: 042
     Dates: start: 20130117, end: 20130121
  14. FOY [Suspect]
     Active Substance: GABEXATE MESYLATE
     Dosage: 2000 MG, QD
     Route: 042
     Dates: start: 20130113
  15. VALIXA [Suspect]
     Active Substance: VALGANCICLOVIR
     Dosage: 900 MG, QD
     Route: 050
     Dates: start: 20130115, end: 20130122
  16. MEROPEN [Suspect]
     Active Substance: MEROPENEM
     Dosage: 0.5 G, BID
     Route: 041
     Dates: start: 20130113, end: 20130123
  17. SOLU-MEDROL [Suspect]
     Active Substance: METHYLPREDNISOLONE SODIUM SUCCINATE
     Dosage: 125 MG, QD
     Route: 042
     Dates: start: 20130108, end: 20130110
  18. SOLU-MEDROL [Suspect]
     Active Substance: METHYLPREDNISOLONE SODIUM SUCCINATE
     Dosage: 250 MG, QD
     Route: 042
     Dates: start: 20130116, end: 20130119
  19. DORMICUM [Suspect]
     Active Substance: MIDAZOLAM\MIDAZOLAM HYDROCHLORIDE
     Dosage: 10 MG, QD
     Route: 042
     Dates: start: 20130112
  20. ENDOXAN [Suspect]
     Active Substance: CYCLOPHOSPHAMIDE
     Indication: ALLERGIC GRANULOMATOUS ANGIITIS
     Dosage: 50 MG, QD
     Route: 048
     Dates: start: 20120511, end: 201211
  21. PREDONINE [Suspect]
     Active Substance: PREDNISOLONE\PREDNISOLONE ACETATE\PREDNISOLONE SODIUM SUCCINATE
     Indication: ALLERGIC GRANULOMATOUS ANGIITIS
     Route: 042
     Dates: start: 201210, end: 20121220
  22. FUROSEMIDE. [Suspect]
     Active Substance: FUROSEMIDE
     Dosage: 40 MG, QD
     Route: 042
     Dates: start: 20130122
  23. PREDONINE [Suspect]
     Active Substance: PREDNISOLONE\PREDNISOLONE ACETATE\PREDNISOLONE SODIUM SUCCINATE
     Dosage: 60 MG, QD
     Route: 051
     Dates: start: 20130106, end: 20130107
  24. PREDONINE [Suspect]
     Active Substance: PREDNISOLONE\PREDNISOLONE ACETATE\PREDNISOLONE SODIUM SUCCINATE
     Dosage: 60 MG, QD
     Route: 051
     Dates: start: 20130111, end: 20130111
  25. FUNGIZONE [Suspect]
     Active Substance: AMPHOTERICIN B
     Dosage: 1 MG, TID
     Route: 048
     Dates: start: 20121224
  26. SOLU-MEDROL [Suspect]
     Active Substance: METHYLPREDNISOLONE SODIUM SUCCINATE
     Dosage: 125 MG, QD
     Route: 042
     Dates: start: 20130103, end: 20130105
  27. PREDONINE [Suspect]
     Active Substance: PREDNISOLONE\PREDNISOLONE ACETATE\PREDNISOLONE SODIUM SUCCINATE
     Route: 051
     Dates: start: 20121221, end: 20121225
  28. SOLU-MEDROL [Suspect]
     Active Substance: METHYLPREDNISOLONE SODIUM SUCCINATE
     Dosage: 625 MG, QD
     Route: 042
     Dates: start: 20130112, end: 20130112
  29. KETALAR [Suspect]
     Active Substance: KETAMINE HYDROCHLORIDE
     Dosage: 40 MG, QD
     Route: 042
     Dates: start: 20130112

REACTIONS (4)
  - Immunodeficiency [Unknown]
  - Hypercapnia [Not Recovered/Not Resolved]
  - Rash [Not Recovered/Not Resolved]
  - Hepatic function abnormal [Not Recovered/Not Resolved]

NARRATIVE: CASE EVENT DATE: 20130119
